FAERS Safety Report 11799721 (Version 5)
Quarter: 2016Q1

REPORT INFORMATION
  Report Type: Spontaneous
  Country: BR (occurrence: BR)
  Receive Date: 20151203
  Receipt Date: 20160121
  Transmission Date: 20160525
  Serious: Yes (Other)
  Sender: FDA-Public Use
  Company Number: PHHY2015BR158697

PATIENT
  Sex: Female
  Weight: 62 kg

DRUGS (2)
  1. DIOVAN [Suspect]
     Active Substance: VALSARTAN
     Indication: HYPERTENSION
     Dosage: 1 DF, QD (IN THE MORNING)
     Route: 048
  2. DIOVAN AMLO FIX [Suspect]
     Active Substance: AMLODIPINE\VALSARTAN
     Indication: HYPERTENSION
     Dosage: SHE ONLY USED 10 TABLETS
     Route: 048

REACTIONS (7)
  - Nervousness [Unknown]
  - Drug hypersensitivity [Not Recovered/Not Resolved]
  - Generalised erythema [Not Recovered/Not Resolved]
  - Foot fracture [Not Recovered/Not Resolved]
  - Blood pressure increased [Unknown]
  - Burning sensation [Not Recovered/Not Resolved]
  - Swelling [Not Recovered/Not Resolved]
